FAERS Safety Report 20052346 (Version 1)
Quarter: 2021Q4

REPORT INFORMATION
  Report Type: Spontaneous
  Country: JP (occurrence: JP)
  Receive Date: 20211110
  Receipt Date: 20211110
  Transmission Date: 20220303
  Serious: Yes (Other)
  Sender: FDA-Public Use
  Company Number: JP-TEVA-2021-JP-1975636

PATIENT
  Age: 72 Year
  Sex: Male

DRUGS (3)
  1. TRISENOX [Suspect]
     Active Substance: ARSENIC TRIOXIDE
     Indication: Acute promyelocytic leukaemia
     Route: 042
  2. CYTARABINE [Suspect]
     Active Substance: CYTARABINE
     Indication: Acute promyelocytic leukaemia
     Route: 042
  3. AMNOLAKE [Concomitant]
     Indication: Acute promyelocytic leukaemia

REACTIONS (7)
  - Ventricular extrasystoles [Unknown]
  - Ventricular tachycardia [Recovered/Resolved]
  - Ejection fraction decreased [Unknown]
  - Cardiomyopathy [Unknown]
  - Electrocardiogram QT prolonged [Recovered/Resolved]
  - Ejection fraction decreased [Unknown]
  - Ventricular tachycardia [Recovered/Resolved]
